FAERS Safety Report 20203740 (Version 1)
Quarter: 2021Q4

REPORT INFORMATION
  Report Type: Spontaneous
  Country: DE (occurrence: DE)
  Receive Date: 20211219
  Receipt Date: 20211219
  Transmission Date: 20220303
  Serious: Yes (Death, Other)
  Sender: FDA-Public Use
  Company Number: DE-ALXN-A202113734

PATIENT
  Sex: Male

DRUGS (5)
  1. SOLIRIS [Suspect]
     Active Substance: ECULIZUMAB
     Indication: Glomerulonephritis membranoproliferative
     Dosage: UNK, Q2W
     Route: 065
     Dates: start: 20201027, end: 20210119
  2. SOLIRIS [Suspect]
     Active Substance: ECULIZUMAB
     Indication: C3 glomerulopathy
  3. SOLIRIS [Suspect]
     Active Substance: ECULIZUMAB
     Indication: Pyelitis
  4. SOLIRIS [Suspect]
     Active Substance: ECULIZUMAB
     Indication: Off label use
  5. MYCOPHENOLATE MOFETIL [Concomitant]
     Active Substance: MYCOPHENOLATE MOFETIL
     Indication: Product used for unknown indication
     Dosage: UNK
     Route: 065

REACTIONS (4)
  - Anal squamous cell carcinoma [Fatal]
  - Bladder cancer [Fatal]
  - Hepatic cancer [Fatal]
  - Off label use [Unknown]
